FAERS Safety Report 7959095-0 (Version None)
Quarter: 2011Q4

REPORT INFORMATION
  Report Type: 
  Country: None (occurrence: None)
  Receive Date: 20111206
  Receipt Date: 20111206
  Transmission Date: 20120403
  Serious: Yes (Other)
  Sender: FDA-Public Use
  Company Number: None

PATIENT
  Age: 17 Year
  Sex: Female
  Weight: 68.038 kg

DRUGS (3)
  1. SINGULAIR [Suspect]
     Indication: ASTHMA EXERCISE INDUCED
     Dosage: 1
     Route: 048
     Dates: start: 20111110, end: 20111205
  2. BEYAZ [Concomitant]
  3. ZYRTEC [Concomitant]

REACTIONS (2)
  - ANXIETY [None]
  - NIGHTMARE [None]
